FAERS Safety Report 9170486 (Version 1)
Quarter: 2013Q1

REPORT INFORMATION
  Report Type: Spontaneous
  Country: US (occurrence: None)
  Receive Date: 20130315
  Receipt Date: 20130315
  Transmission Date: 20140127
  Serious: Yes (Other)
  Sender: FDA-Public Use
  Company Number: None

PATIENT
  Age: 20 Year
  Sex: Female
  Weight: 48.54 kg

DRUGS (1)
  1. CELESTONE [Suspect]
     Indication: OROPHARYNGEAL PAIN

REACTIONS (7)
  - Loss of consciousness [None]
  - Scar [None]
  - Craniocerebral injury [None]
  - Fall [None]
  - Facial bones fracture [None]
  - Loss of consciousness [None]
  - Feeling hot [None]
